FAERS Safety Report 6354671-3 (Version None)
Quarter: 2009Q3

REPORT INFORMATION
  Report Type: 
  Country: None (occurrence: None)
  Receive Date: 20090909
  Receipt Date: 20090831
  Transmission Date: 20100115
  Serious: Yes (Other)
  Sender: FDA-Public Use
  Company Number: 369557

PATIENT
  Age: 3 Year
  Sex: Female
  Weight: 14 kg

DRUGS (3)
  1. (SUFENTANIL) [Suspect]
     Indication: SEDATIVE THERAPY
     Dosage: 1 MCG/KG, INTRANASAL
     Route: 045
  2. MIDAZOLAM HYDROCHLORIDE [Suspect]
     Indication: SEDATIVE THERAPY
     Dosage: 3 MG/KG, INTRANASAL; 2.5 MG
     Route: 045
  3. (NITROUS OXIDE) [Suspect]
     Indication: SEDATIVE THERAPY
     Dosage: 50%, INHALATION
     Route: 055

REACTIONS (7)
  - DEPRESSED LEVEL OF CONSCIOUSNESS [None]
  - DRUG EFFECT DECREASED [None]
  - HEART RATE INCREASED [None]
  - LARYNGOSPASM [None]
  - OBSTRUCTIVE AIRWAYS DISORDER [None]
  - OXYGEN SATURATION DECREASED [None]
  - RESPIRATORY RATE INCREASED [None]
